FAERS Safety Report 10098753 (Version 1)
Quarter: 2014Q2

REPORT INFORMATION
  Report Type: Report from Study
  Country: MY (occurrence: MY)
  Receive Date: 20140423
  Receipt Date: 20140423
  Transmission Date: 20141212
  Serious: Yes (Hospitalization)
  Sender: FDA-Public Use
  Company Number: MY-BAYER-2014-056009

PATIENT
  Age: 89 Year
  Sex: Male

DRUGS (2)
  1. ASPIRIN [Suspect]
     Dosage: UNK
  2. PANTOPRAZOLE [Concomitant]
     Indication: DUODENAL ULCER

REACTIONS (5)
  - Gastric ulcer haemorrhage [None]
  - Anaemia [None]
  - Melaena [None]
  - Haematemesis [None]
  - Abdominal pain upper [None]
